FAERS Safety Report 5339918-4 (Version None)
Quarter: 2007Q2

REPORT INFORMATION
  Report Type: 
  Country: None (occurrence: None)
  Receive Date: 20070529
  Receipt Date: 20070518
  Transmission Date: 20071010
  Serious: Yes (Hospitalization)
  Sender: FDA-Public Use
  Company Number: 2007SP009785

PATIENT
  Age: 59 Year
  Sex: Female

DRUGS (2)
  1. REBETOL [Suspect]
     Indication: HEPATITIS C
     Dosage: PO
     Route: 048
     Dates: start: 19970101, end: 20000101
  2. INTRON A [Suspect]
     Indication: HEPATITIS C
     Dosage: TIW
     Dates: start: 19970101, end: 20000101

REACTIONS (5)
  - DEHYDRATION [None]
  - INCORRECT DOSE ADMINISTERED [None]
  - PAIN [None]
  - SUICIDE ATTEMPT [None]
  - VOMITING [None]
